FAERS Safety Report 9222705 (Version 1)
Quarter: 2013Q1

REPORT INFORMATION
  Report Type: Spontaneous
  Country: US (occurrence: US)
  Receive Date: 20120914
  Receipt Date: 20120914
  Transmission Date: 20140127
  Serious: Yes (Other)
  Sender: FDA-Public Use
  Company Number: JPI-P-022045

PATIENT
  Age: 46 Year
  Sex: Female
  Weight: 48.99 kg

DRUGS (15)
  1. XYREM [Suspect]
     Dosage: 2 DOSES OF 2.25 GM TAKEN NIGHTLY/AT BEDTIME.
     Route: 048
     Dates: start: 20100204
  2. ALPRAZOLAM [Suspect]
     Dates: end: 20120610
  3. ARIPIPRAZOLE [Concomitant]
  4. PROMETHAZINE HYDROCHLORIDE [Concomitant]
  5. HYDROCHLOROTHIAZIDE [Concomitant]
  6. SOLIFENACIN [Concomitant]
  7. CYCLOBENZAPRINE [Concomitant]
  8. METHOCARBAMOL [Concomitant]
  9. ESOMEPRAZOLE [Concomitant]
  10. MILNACIPRAN [Concomitant]
  11. VERAPAMIL [Concomitant]
  12. DULOXETINE [Concomitant]
  13. LORATADINE [Concomitant]
  14. BECLOMETHASONE DIPROPIONATE [Concomitant]
  15. ALBUTEROL [Concomitant]

REACTIONS (10)
  - Weight decreased [None]
  - Palpitations [None]
  - Anxiety [None]
  - Oedema peripheral [None]
  - Memory impairment [None]
  - Decreased appetite [None]
  - Headache [None]
  - Insomnia [None]
  - Paraesthesia [None]
  - Incorrect dose administered [None]
